FAERS Safety Report 25216364 (Version 6)
Quarter: 2025Q2

REPORT INFORMATION
  Report Type: Spontaneous
  Country: CA (occurrence: CA)
  Receive Date: 20250418
  Receipt Date: 20250602
  Transmission Date: 20250717
  Serious: Yes (Disabling, Other)
  Sender: ROCHE
  Company Number: CA-ROCHE-10000250570

PATIENT
  Sex: Female

DRUGS (1)
  1. VABYSMO [Suspect]
     Active Substance: FARICIMAB-SVOA
     Indication: Product used for unknown indication
     Route: 050
     Dates: start: 20250311

REACTIONS (2)
  - Bacterial endophthalmitis [Unknown]
  - Suspected transmission of an infectious agent via product [Unknown]
